FAERS Safety Report 10003986 (Version 1)
Quarter: 2014Q1

REPORT INFORMATION
  Report Type: Spontaneous
  Country: US (occurrence: US)
  Receive Date: 20140312
  Receipt Date: 20140312
  Transmission Date: 20141002
  Serious: No
  Sender: FDA-Public Use
  Company Number: US-INCYTE CORPORATION-2013IN002928

PATIENT
  Sex: Female

DRUGS (2)
  1. JAKAFI [Suspect]
     Dosage: 10 MG, UNK
     Route: 048
  2. JAKAFI [Suspect]
     Dosage: 5 MG, 1.5 TABLETS BID
     Route: 048

REACTIONS (2)
  - Drug intolerance [Unknown]
  - Medication error [None]
